FAERS Safety Report 6958503-1 (Version None)
Quarter: 2010Q3

REPORT INFORMATION
  Report Type: 
  Country: None (occurrence: None)
  Receive Date: 20100831
  Receipt Date: 20100823
  Transmission Date: 20110219
  Serious: Yes (Hospitalization)
  Sender: FDA-Public Use
  Company Number: GXKR2010GB09419

PATIENT
  Age: 32 Year
  Sex: Male

DRUGS (1)
  1. KETOROLAC (NGX) [Suspect]
     Dosage: 4 DF, UNK
     Route: 060

REACTIONS (7)
  - CHEST DISCOMFORT [None]
  - COUGH [None]
  - DYSPNOEA [None]
  - HAEMOPTYSIS [None]
  - MALAISE [None]
  - PULMONARY HAEMORRHAGE [None]
  - PYREXIA [None]
